FAERS Safety Report 17902208 (Version 2)
Quarter: 2020Q3

REPORT INFORMATION
  Report Type: Spontaneous
  Country: US (occurrence: US)
  Receive Date: 20200616
  Receipt Date: 20200710
  Transmission Date: 20201103
  Serious: Yes (Other)
  Sender: FDA-Public Use
  Company Number: US-GILEAD-2020-0470939

PATIENT
  Age: 79 Year
  Sex: Male
  Weight: 78.3 kg

DRUGS (21)
  1. CISATRACURIUM. [Concomitant]
     Active Substance: CISATRACURIUM
  2. FAMOTIDINE. [Concomitant]
     Active Substance: FAMOTIDINE
  3. INSULIN [Concomitant]
     Active Substance: INSULIN NOS
  4. ZOSYN [Concomitant]
     Active Substance: PIPERACILLIN SODIUM\TAZOBACTAM SODIUM
  5. VANCOMYCIN [Concomitant]
     Active Substance: VANCOMYCIN
  6. ASPIRIN [ACETYLSALICYLIC ACID] [Concomitant]
     Active Substance: ASPIRIN
  7. PIPERACILLIN AND TAZOBACTAM [Concomitant]
     Active Substance: PIPERACILLIN SODIUM\TAZOBACTAM SODIUM
  8. ATORVASTATIN [Concomitant]
     Active Substance: ATORVASTATIN
  9. ENOXAPARIN [Concomitant]
     Active Substance: ENOXAPARIN
  10. METHYLPREDNISOLONE. [Concomitant]
     Active Substance: METHYLPREDNISOLONE
  11. SENNOSIDES. [Concomitant]
     Active Substance: SENNOSIDES
  12. REMDESIVIR. [Suspect]
     Active Substance: REMDESIVIR
     Indication: COVID-19
     Dosage: 100 MG, QD
     Route: 042
     Dates: start: 20200526, end: 20200530
  13. EPOPROSTENOL. [Concomitant]
     Active Substance: EPOPROSTENOL
  14. FENTANYL. [Concomitant]
     Active Substance: FENTANYL
  15. FUROSEMIDE. [Concomitant]
     Active Substance: FUROSEMIDE
  16. NOREPINEPHRINE. [Concomitant]
     Active Substance: NOREPINEPHRINE
  17. PROPOFOL. [Concomitant]
     Active Substance: PROPOFOL
  18. POTASSIUM [Concomitant]
     Active Substance: POTASSIUM
  19. DOCUSATE [Concomitant]
     Active Substance: DOCUSATE
  20. KETAMINE [Concomitant]
     Active Substance: KETAMINE
  21. PREDNISONE. [Concomitant]
     Active Substance: PREDNISONE

REACTIONS (2)
  - Aspartate aminotransferase increased [Unknown]
  - Blood bilirubin abnormal [Unknown]

NARRATIVE: CASE EVENT DATE: 20200601
